FAERS Safety Report 10022347 (Version 1)
Quarter: 2014Q1

REPORT INFORMATION
  Report Type: Report from Study
  Country: JP (occurrence: JP)
  Receive Date: 20140319
  Receipt Date: 20140319
  Transmission Date: 20141002
  Serious: Yes (Hospitalization)
  Sender: FDA-Public Use
  Company Number: JP-AMGEN-JPNCT2014018725

PATIENT
  Age: 67 Year
  Sex: Female
  Weight: 57 kg

DRUGS (21)
  1. CINACALCET HCL [Suspect]
     Indication: HYPERPARATHYROIDISM SECONDARY
     Dosage: 75 MG, QD
     Route: 048
  2. RENAGEL                            /01459902/ [Concomitant]
     Indication: HYPERPHOSPHATAEMIA
     Dosage: 1 G, TID
     Route: 048
     Dates: start: 20130902, end: 20131125
  3. FESIN                              /00023550/ [Concomitant]
     Dosage: 40 MG, 1X/WEEK
     Route: 042
     Dates: start: 20130920
  4. EPOETIN ALFA [Concomitant]
     Dosage: 750 MUG, 1X/WEEK
     Route: 042
     Dates: start: 20131011
  5. SOLDANA [Concomitant]
     Dosage: 24 MG, QD
     Route: 048
  6. DEPAS [Concomitant]
     Dosage: 0.5 MG, QD
     Route: 048
  7. DIART [Concomitant]
     Dosage: 60 MG, BID
     Route: 048
  8. CERCINE [Concomitant]
     Dosage: 2 MG, TID
     Route: 048
  9. MAINTATE [Concomitant]
     Dosage: 2.5 MG, QD
     Route: 048
  10. SEISHOKU [Concomitant]
     Dosage: 20 ML, UNK
     Route: 042
  11. HEPARIN SODIUM [Concomitant]
     Dosage: 3 ML, UNK
     Route: 042
  12. ISOTONIC SODIUM CHLORIDE SOLUTION [Concomitant]
     Dosage: 2 L, UNK
     Route: 042
  13. SYOUETA [Concomitant]
     Dosage: 1 DF, UNK
  14. YOUPATCH [Concomitant]
     Dosage: 36 MG, UNK
     Route: 062
  15. MOHRUS [Concomitant]
     Dosage: UNK
     Route: 062
     Dates: start: 20131002
  16. LOXONIN [Concomitant]
     Dosage: 60 MG, UNK
     Route: 048
     Dates: start: 20130812
  17. NAPAGELN [Concomitant]
     Dosage: UNK
     Dates: start: 20130826
  18. SHAKUYAKUKANZOTO [Concomitant]
     Dosage: 2.5 G, SINGLE
     Route: 048
  19. ZOLPIDEM TARTRATE [Concomitant]
     Dosage: 10 MG, QD
     Route: 048
     Dates: start: 20131018
  20. GLUCOSE [Concomitant]
     Dosage: 20 MG, UNK
     Route: 065
     Dates: start: 20130923
  21. AZULAVINE [Concomitant]
     Dosage: UNK
     Route: 047

REACTIONS (6)
  - Shunt stenosis [Recovered/Resolved]
  - Abdominal discomfort [Recovered/Resolved]
  - Nasopharyngitis [Recovered/Resolved]
  - Insomnia [Recovered/Resolved]
  - Nasopharyngitis [Recovered/Resolved]
  - Abdominal pain upper [Recovered/Resolved]
